FAERS Safety Report 5493847-4 (Version None)
Quarter: 2007Q4

REPORT INFORMATION
  Report Type: 
  Country: None (occurrence: None)
  Receive Date: 20071019
  Receipt Date: 20071008
  Transmission Date: 20080405
  Serious: Yes (Other)
  Sender: FDA-Public Use
  Company Number: TRP_00982_2007

PATIENT
  Age: 51 Year
  Sex: Male

DRUGS (3)
  1. RIBAVIRIN [Suspect]
     Indication: HEPATITIS C
     Dosage: (DF ORAL)
     Route: 048
     Dates: end: 20070715
  2. PEGASYS [Suspect]
     Indication: HEPATITIS C
     Dosage: (DF SUBCUTANEOUS)
     Route: 058
     Dates: end: 20070715
  3. TOPAMAX [Suspect]
     Indication: DRUG USE FOR UNKNOWN INDICATION
     Dosage: (DF)

REACTIONS (7)
  - CONDITION AGGRAVATED [None]
  - DEAFNESS [None]
  - HAEMOLYTIC ANAEMIA [None]
  - MIGRAINE [None]
  - PLATELET COUNT DECREASED [None]
  - TINNITUS [None]
  - WHITE BLOOD CELL COUNT DECREASED [None]
